FAERS Safety Report 24448729 (Version 1)
Quarter: 2024Q4

REPORT INFORMATION
  Report Type: Spontaneous
  Country: GB (occurrence: GB)
  Receive Date: 20241017
  Receipt Date: 20241017
  Transmission Date: 20250115
  Serious: Yes (Hospitalization)
  Sender: ACCORD
  Company Number: GB-MLMSERVICE-20241002-PI214700-00336-1

PATIENT
  Age: 11 Year
  Sex: Male

DRUGS (1)
  1. ZOLEDRONIC ACID [Suspect]
     Active Substance: ZOLEDRONIC ACID
     Indication: Osteoporosis
     Dosage: ADMINISTERED 0.0125 MG/KG ZOLEDRONIC ACID INTRAVENOUSLY OVER 45 MINUTES

REACTIONS (1)
  - Rhabdomyolysis [Recovered/Resolved]
